FAERS Safety Report 17859145 (Version 1)
Quarter: 2020Q2

REPORT INFORMATION
  Report Type: Spontaneous
  Country: US (occurrence: US)
  Receive Date: 20200603
  Receipt Date: 20200603
  Transmission Date: 20200714
  Serious: Yes (Other)
  Sender: FDA-Public Use
  Company Number: None

PATIENT

DRUGS (1)
  1. OLD SPICE ANTIPERSPIRANT-DEODORANT + BODY SPRAY [Suspect]
     Active Substance: ALUMINUM ZIRCONIUM TRICHLOROHYDREX GLY
     Route: 061

REACTIONS (5)
  - Scar [None]
  - Hair growth abnormal [None]
  - Skin injury [None]
  - Chemical burn of skin [None]
  - Skin infection [None]
